FAERS Safety Report 19426340 (Version 2)
Quarter: 2021Q3

REPORT INFORMATION
  Report Type: Spontaneous
  Country: DE (occurrence: DE)
  Receive Date: 20210617
  Receipt Date: 20210920
  Transmission Date: 20211014
  Serious: Yes (Hospitalization)
  Sender: FDA-Public Use
  Company Number: DE-BIOGEN-2018BI00579347

PATIENT
  Age: 1 Year
  Sex: Male

DRUGS (2)
  1. SPINRAZA [Suspect]
     Active Substance: NUSINERSEN
     Indication: SPINAL MUSCULAR ATROPHY
     Route: 050
     Dates: start: 201702
  2. SPINRAZA [Suspect]
     Active Substance: NUSINERSEN
     Route: 037

REACTIONS (16)
  - Muscular weakness [Unknown]
  - Viral infection [Recovered/Resolved]
  - Dysphagia [Unknown]
  - Scoliosis [Not Recovered/Not Resolved]
  - Mental disorder [Recovered/Resolved]
  - Muscle contracture [Recovered/Resolved]
  - Muscle spasticity [Recovered/Resolved]
  - Musculoskeletal stiffness [Recovered/Resolved]
  - Head discomfort [Not Recovered/Not Resolved]
  - General physical health deterioration [Not Recovered/Not Resolved]
  - Bronchitis [Recovered/Resolved]
  - Hypokinesia [Recovered/Resolved]
  - Procedural vomiting [Recovered/Resolved]
  - Fatigue [Recovered/Resolved]
  - Spinal disorder [Not Recovered/Not Resolved]
  - Muscle twitching [Unknown]

NARRATIVE: CASE EVENT DATE: 201702
